FAERS Safety Report 9125576 (Version 4)
Quarter: 2014Q1

REPORT INFORMATION
  Report Type: Spontaneous
  Country: US (occurrence: US)
  Receive Date: 20130121
  Receipt Date: 20140130
  Transmission Date: 20141002
  Serious: Yes (Hospitalization)
  Sender: FDA-Public Use
  Company Number: US-GLAXOSMITHKLINE-A1009000A

PATIENT
  Age: 58 Year
  Sex: Female

DRUGS (3)
  1. FLOLAN [Suspect]
     Indication: PULMONARY ARTERIAL HYPERTENSION
     Dosage: 40.76NGKM CONTINUOUS
     Route: 042
     Dates: start: 20070416
  2. COUMADIN [Concomitant]
  3. VIAGRA [Concomitant]

REACTIONS (8)
  - Pyrexia [Unknown]
  - Nasopharyngitis [Not Recovered/Not Resolved]
  - Pneumonia [Unknown]
  - Cough [Unknown]
  - Intra-abdominal haematoma [Unknown]
  - Pain in extremity [Unknown]
  - Diarrhoea [Unknown]
  - Pain in jaw [Unknown]
